FAERS Safety Report 12378392 (Version 1)
Quarter: 2016Q2

REPORT INFORMATION
  Report Type: Spontaneous
  Country: FR (occurrence: FR)
  Receive Date: 20160517
  Receipt Date: 20160517
  Transmission Date: 20160815
  Serious: Yes (Hospitalization)
  Sender: FDA-Public Use
  Company Number: FR-FRESENIUS KABI-FK201602698

PATIENT
  Sex: Female

DRUGS (1)
  1. NEOSTIGMINE (MANUFACTURER UNKNOWN) (NEOSTIGMINE, METHYLSULFATE) [Suspect]
     Active Substance: NEOSTIGMINE
     Indication: NEUROMUSCULAR BLOCKADE REVERSAL
     Route: 042

REACTIONS (1)
  - Anaphylactic reaction [Recovered/Resolved]
